FAERS Safety Report 17717990 (Version 1)
Quarter: 2020Q2

REPORT INFORMATION
  Report Type: Spontaneous
  Country: US (occurrence: US)
  Receive Date: 20200428
  Receipt Date: 20200428
  Transmission Date: 20200714
  Serious: No
  Sender: FDA-Public Use
  Company Number: US-009507513-2004USA001178

PATIENT
  Age: 53 Year

DRUGS (1)
  1. INTEGRILIN [Suspect]
     Active Substance: EPTIFIBATIDE
     Indication: CORONARY ARTERY THROMBOSIS
     Dosage: UNK

REACTIONS (1)
  - Drug ineffective [Unknown]
